FAERS Safety Report 8221292-7 (Version None)
Quarter: 2012Q1

REPORT INFORMATION
  Report Type: 
  Country: None (occurrence: None)
  Receive Date: 20120320
  Receipt Date: 20120315
  Transmission Date: 20120608
  Serious: Yes (Other)
  Sender: FDA-Public Use
  Company Number: US-PFIZER INC-2012061893

PATIENT
  Sex: Male

DRUGS (4)
  1. CADUET [Suspect]
     Dosage: 10 MG, 1X/DAY
  2. PLAVIX [Concomitant]
     Dosage: UNK
  3. PROTONIX [Suspect]
     Dosage: 40 MG, 1X/DAY
  4. CARDURA [Suspect]
     Dosage: 2 MG, 1X/DAY

REACTIONS (2)
  - CEREBROVASCULAR ACCIDENT [None]
  - VISUAL FIELD DEFECT [None]
